FAERS Safety Report 16971306 (Version 2)
Quarter: 2019Q4

REPORT INFORMATION
  Report Type: Spontaneous
  Country: DE (occurrence: DE)
  Receive Date: 20191029
  Receipt Date: 20191227
  Transmission Date: 20200122
  Serious: Yes (Other)
  Sender: FDA-Public Use
  Company Number: DE-AMGEN-DEUSP2019178811

PATIENT
  Sex: Female

DRUGS (1)
  1. AIMOVIG [Suspect]
     Active Substance: ERENUMAB-AOOE
     Indication: PRODUCT USED FOR UNKNOWN INDICATION
     Dosage: 70 MILLIGRAM, QMO
     Route: 065

REACTIONS (4)
  - Loss of consciousness [Unknown]
  - Asthenia [Unknown]
  - Blood pressure increased [Unknown]
  - Heart rate increased [Unknown]

NARRATIVE: CASE EVENT DATE: 201909
